FAERS Safety Report 11473859 (Version 1)
Quarter: 2015Q3

REPORT INFORMATION
  Report Type: Spontaneous
  Country: US (occurrence: None)
  Receive Date: 20150902
  Receipt Date: 20150902
  Transmission Date: 20151125
  Serious: Yes (Hospitalization)
  Sender: FDA-Public Use
  Company Number: A-NJ2014-110871

PATIENT
  Age: 41 Year
  Sex: Female

DRUGS (2)
  1. COUMADIN [Concomitant]
     Active Substance: WARFARIN SODIUM
  2. VELETRI [Suspect]
     Active Substance: EPOPROSTENOL
     Indication: PULMONARY ARTERIAL HYPERTENSION
     Dosage: 12 NG/KG, PER MIN, INTRAVENOUS
     Route: 042
     Dates: start: 20141219

REACTIONS (12)
  - Musculoskeletal pain [None]
  - Arthralgia [None]
  - Pain [None]
  - Device alarm issue [None]
  - Headache [None]
  - Pain in jaw [None]
  - Feeding disorder [None]
  - Erythema [None]
  - Flushing [None]
  - Nausea [None]
  - Vomiting [None]
  - Fatigue [None]
